FAERS Safety Report 11584598 (Version 1)
Quarter: 2015Q4

REPORT INFORMATION
  Report Type: Spontaneous
  Country: IL (occurrence: IL)
  Receive Date: 20151001
  Receipt Date: 20151001
  Transmission Date: 20160304
  Serious: Yes (Other)
  Sender: FDA-Public Use
  Company Number: IL-TARO PHARMACEUTICALS USA.,INC-2015SUN02067

PATIENT
  Age: 69 Year
  Sex: Female

DRUGS (13)
  1. AMELO [Concomitant]
  2. DIOBAN [Concomitant]
  3. CARTIA XT [Concomitant]
     Active Substance: DILTIAZEM HYDROCHLORIDE
  4. COUMADIN [Suspect]
     Active Substance: WARFARIN SODIUM
     Indication: PRODUCT USED FOR UNKNOWN INDICATION
     Route: 065
  5. OCSOCOD [Concomitant]
  6. RECITAL [Concomitant]
  7. FOSID [Concomitant]
  8. EUTHYROXID [Concomitant]
  9. CARDIOLOC [Concomitant]
  10. STATIN [Concomitant]
     Active Substance: UNSPECIFIED INGREDIENT
  11. DISKETS [Suspect]
     Active Substance: METHADONE HYDROCHLORIDE
  12. APIXABAN [Suspect]
     Active Substance: APIXABAN
     Indication: ATRIAL FIBRILLATION
     Dosage: 5 MG, BID
     Route: 048
     Dates: start: 20140914, end: 20150318
  13. SPIRONOLACTON [Concomitant]
     Active Substance: SPIRONOLACTONE

REACTIONS (1)
  - Aortic thrombosis [Recovered/Resolved]
